FAERS Safety Report 8487409-4 (Version None)
Quarter: 2012Q2

REPORT INFORMATION
  Report Type: 
  Country: None (occurrence: None)
  Receive Date: 20120628
  Receipt Date: 20120628
  Transmission Date: 20120825
  Serious: Yes (Hospitalization)
  Sender: FDA-Public Use
  Company Number: None

PATIENT
  Sex: Female
  Weight: 44.5 kg

DRUGS (5)
  1. PEG-L-ASPARAGINASE (K-H) [Suspect]
     Dosage: 3225 UNIT
  2. CYTARABINE [Suspect]
     Dosage: 70 MG
  3. VINCRISTINE SULFATE [Suspect]
     Dosage: 3.88 MG
  4. METHYLPREDNISOLONE [Suspect]
     Dosage: 813.75 MG
  5. METHOTREXATE [Suspect]
     Dosage: 15 MG

REACTIONS (10)
  - ABDOMINAL PAIN UPPER [None]
  - PYREXIA [None]
  - FUNGAL TEST POSITIVE [None]
  - SKIN LESION [None]
  - DIARRHOEA [None]
  - KLEBSIELLA TEST POSITIVE [None]
  - SIMPLEX VIRUS TEST POSITIVE [None]
  - NEUTROPENIA [None]
  - HYPOTENSION [None]
  - CANDIDA TEST POSITIVE [None]
